FAERS Safety Report 10040229 (Version 2)
Quarter: 2014Q2

REPORT INFORMATION
  Report Type: Spontaneous
  Country: NL (occurrence: NL)
  Receive Date: 20140327
  Receipt Date: 20140425
  Transmission Date: 20141212
  Serious: Yes (Hospitalization)
  Sender: FDA-Public Use
  Company Number: NL-AMGEN-NLDSP2013092621

PATIENT
  Age: 63 Year
  Sex: Male

DRUGS (2)
  1. NEULASTA [Suspect]
     Indication: PROPHYLAXIS
     Dosage: 6 MG, 1X3W
     Route: 058
     Dates: start: 20120425, end: 20120908
  2. XGEVA [Suspect]
     Indication: PROPHYLAXIS
     Dosage: 1.7 ML, 1X4W
     Route: 058
     Dates: start: 20120404

REACTIONS (1)
  - Investigation [Unknown]
